FAERS Safety Report 6209471-1 (Version None)
Quarter: 2009Q2

REPORT INFORMATION
  Report Type: 
  Country: None (occurrence: None)
  Receive Date: 20090601
  Receipt Date: 20090202
  Transmission Date: 20091009
  Serious: No
  Sender: FDA-Public Use
  Company Number: A0767725A

PATIENT
  Age: 57 Year
  Sex: Female
  Weight: 59.1 kg

DRUGS (2)
  1. AUGMENTIN '125' [Suspect]
     Indication: SINUSITIS
     Dosage: 500MG THREE TIMES PER DAY
     Route: 048
     Dates: start: 20090121, end: 20090126
  2. SYNTHROID [Concomitant]

REACTIONS (5)
  - DISCOMFORT [None]
  - FEELING ABNORMAL [None]
  - PRURITUS GENERALISED [None]
  - RASH PRURITIC [None]
  - URTICARIA [None]
